FAERS Safety Report 16946583 (Version 2)
Quarter: 2019Q4

REPORT INFORMATION
  Report Type: Spontaneous
  Country: BG (occurrence: BG)
  Receive Date: 20191022
  Receipt Date: 20191025
  Transmission Date: 20200122
  Serious: Yes (Life-Threatening, Other)
  Sender: FDA-Public Use
  Company Number: BG-TAKEDA-2019TUS058952

PATIENT
  Age: 59 Year
  Sex: Female

DRUGS (2)
  1. LAMIVUDINE. [Concomitant]
     Active Substance: LAMIVUDINE
     Indication: HEPATITIS B
     Dosage: 50 MILLIGRAM, QD
     Route: 048
  2. ENTYVIO [Suspect]
     Active Substance: VEDOLIZUMAB
     Indication: COLITIS ULCERATIVE
     Dosage: 300 MILLIGRAM
     Route: 042
     Dates: start: 20191001, end: 20191018

REACTIONS (1)
  - Intestinal perforation [Unknown]
